FAERS Safety Report 23950021 (Version 2)
Quarter: 2024Q2

REPORT INFORMATION
  Report Type: Report from Study
  Country: US (occurrence: US)
  Receive Date: 20240607
  Receipt Date: 20240624
  Transmission Date: 20240716
  Serious: Yes (Other)
  Sender: FDA-Public Use
  Company Number: US-ROCHE-3577557

PATIENT
  Age: 78 Year
  Sex: Female

DRUGS (13)
  1. XOLAIR [Suspect]
     Active Substance: OMALIZUMAB
     Indication: Idiopathic urticaria
     Dosage: ANTICIPATED DATE OF TREATMENT: 30/MAY/2024.
     Route: 058
     Dates: start: 20240502
  2. XOLAIR [Suspect]
     Active Substance: OMALIZUMAB
  3. AZELASTINE [Concomitant]
     Active Substance: AZELASTINE\AZELASTINE HYDROCHLORIDE
  4. COLCHICINE [Concomitant]
     Active Substance: COLCHICINE
  5. CROMOLYN [Concomitant]
     Active Substance: CROMOLYN
  6. FAMOTIDINE [Concomitant]
     Active Substance: FAMOTIDINE
  7. FLUOROMETHOLONE [Concomitant]
     Active Substance: FLUOROMETHOLONE
  8. FLUTICASONE [Concomitant]
     Active Substance: FLUTICASONE
  9. KETOTIFEN [Concomitant]
     Active Substance: KETOTIFEN
  10. LEVOCETIRIZINE [Concomitant]
     Active Substance: LEVOCETIRIZINE
  11. OMEPRAZOLE [Concomitant]
     Active Substance: DONEPEZIL HYDROCHLORIDE\OMEPRAZOLE\OMEPRAZOLE MAGNESIUM
  12. PATADAY [Concomitant]
     Active Substance: OLOPATADINE HYDROCHLORIDE
  13. PLAQUENIL [Concomitant]
     Active Substance: HYDROXYCHLOROQUINE SULFATE

REACTIONS (12)
  - Conjunctivitis [Unknown]
  - Anaphylactic reaction [Unknown]
  - Flatulence [Unknown]
  - Sleep disorder [Unknown]
  - Dry skin [Unknown]
  - Pruritus [Unknown]
  - Oropharyngeal discomfort [Unknown]
  - Decreased activity [Unknown]
  - Pain in extremity [Unknown]
  - Peripheral swelling [Unknown]
  - Urinary retention [Unknown]
  - Cough [Unknown]

NARRATIVE: CASE EVENT DATE: 20240502
